FAERS Safety Report 20140060 (Version 1)
Quarter: 2021Q4

REPORT INFORMATION
  Report Type: Spontaneous
  Country: SE (occurrence: SE)
  Receive Date: 20211202
  Receipt Date: 20211202
  Transmission Date: 20220303
  Serious: Yes (Death)
  Sender: FDA-Public Use
  Company Number: SE-HQ SPECIALTY-SE-2021INT000229

PATIENT
  Age: 80 Year
  Sex: Female

DRUGS (3)
  1. CISPLATIN [Suspect]
     Active Substance: CISPLATIN
     Indication: Squamous cell carcinoma
     Dosage: 0.25 ML OF 2MG/ML PER CM3 OF TUMOR VOLUME
     Route: 036
  2. UNSPECIFIED INGREDIENT [Concomitant]
     Active Substance: UNSPECIFIED INGREDIENT
     Indication: Squamous cell carcinoma
     Dosage: 68 GY
     Route: 065
  3. MIVACURIUM CHLORIDE [Concomitant]
     Active Substance: MIVACURIUM CHLORIDE
     Indication: Squamous cell carcinoma
     Dosage: UNK
     Route: 065

REACTIONS (1)
  - Ischaemic stroke [Fatal]
